FAERS Safety Report 4766715-0 (Version None)
Quarter: 2005Q3

REPORT INFORMATION
  Report Type: 
  Country: None (occurrence: None)
  Receive Date: 20050908
  Receipt Date: 20050824
  Transmission Date: 20060218
  Serious: Yes (Hospitalization)
  Sender: FDA-Public Use
  Company Number: 2005-01477

PATIENT
  Age: 67 Year
  Sex: Male
  Weight: 79.1 kg

DRUGS (2)
  1. VELCADE [Suspect]
     Indication: MULTIPLE MYELOMA
     Dosage: 1.30 MG/M2
     Dates: start: 20050614, end: 20050624
  2. SCIO-469(CAPSULE) [Suspect]
     Indication: MULTIPLE MYELOMA
     Dosage: 60.00MG TID ORAL
     Route: 048
     Dates: start: 20050517, end: 20050821

REACTIONS (6)
  - BRONCHIOLITIS [None]
  - CHRONIC OBSTRUCTIVE PULMONARY DISEASE [None]
  - EMPHYSEMA [None]
  - FLUID OVERLOAD [None]
  - FLUID RETENTION [None]
  - HAEMOGLOBIN DECREASED [None]
